FAERS Safety Report 7109887-5 (Version None)
Quarter: 2010Q4

REPORT INFORMATION
  Report Type: 
  Country: None (occurrence: None)
  Receive Date: 20101116
  Receipt Date: 20101116
  Transmission Date: 20110411
  Serious: Yes (Other)
  Sender: FDA-Public Use
  Company Number: None

PATIENT
  Age: 45 Year
  Sex: Female
  Weight: 56.6996 kg

DRUGS (1)
  1. FERAHEME [Suspect]
     Indication: IRON DEFICIENCY ANAEMIA
     Dosage: 510MG IV
     Route: 042
     Dates: start: 20101108, end: 20101108

REACTIONS (4)
  - DIARRHOEA [None]
  - JOINT SWELLING [None]
  - PRURITUS [None]
  - THROAT IRRITATION [None]
